FAERS Safety Report 4446403-0 (Version None)
Quarter: 2004Q3

REPORT INFORMATION
  Report Type: 
  Country: None (occurrence: None)
  Receive Date: 20040902
  Receipt Date: 20040817
  Transmission Date: 20050211
  Serious: Yes (Hospitalization)
  Sender: FDA-Public Use
  Company Number: FR_040804615

PATIENT
  Age: 81 Year
  Sex: Male
  Weight: 66 kg

DRUGS (6)
  1. GEMZAR [Suspect]
     Dosage: UNK
     Route: 065
     Dates: start: 20030922, end: 20040319
  2. PREDNISOLONE [Concomitant]
  3. TADENAN (PYGEUM AFRICANUM) [Concomitant]
  4. NAVELBINE [Concomitant]
  5. PREVISCAN (FLUINDIONE) [Concomitant]
  6. OMEPRAZOLE [Concomitant]

REACTIONS (10)
  - ASTERIXIS [None]
  - ASTHENIA [None]
  - COAGULATION FACTOR V LEVEL DECREASED [None]
  - DYSPNOEA [None]
  - HEPATITIS [None]
  - HEPATOMEGALY [None]
  - LUNG DISORDER [None]
  - OEDEMA PERIPHERAL [None]
  - PROTHROMBIN LEVEL DECREASED [None]
  - SOMNOLENCE [None]
